FAERS Safety Report 8197026-1 (Version None)
Quarter: 2012Q1

REPORT INFORMATION
  Report Type: 
  Country: None (occurrence: None)
  Receive Date: 20120309
  Receipt Date: 20120228
  Transmission Date: 20120608
  Serious: Yes (Hospitalization)
  Sender: FDA-Public Use
  Company Number: IE-ELI_LILLY_AND_COMPANY-IE201202008341

PATIENT
  Sex: Male

DRUGS (12)
  1. AMIODARONE HCL [Concomitant]
  2. CUBICIN [Concomitant]
  3. FRUMIL [Concomitant]
  4. MAXOLON [Concomitant]
  5. SENNA [Concomitant]
  6. ELMIRON [Concomitant]
  7. ACTONEL [Concomitant]
  8. ASPIRIN [Concomitant]
  9. MOVICOL                            /01625101/ [Concomitant]
  10. FORTEO [Suspect]
     Indication: OSTEOPOROSIS
     Dosage: 20 UG, UNK
     Dates: start: 20120203
  11. GALFER [Concomitant]
  12. LEXAPRO [Concomitant]

REACTIONS (1)
  - MALAISE [None]
